FAERS Safety Report 10563128 (Version 2)
Quarter: 2016Q2

REPORT INFORMATION
  Report Type: Spontaneous
  Country: US (occurrence: US)
  Receive Date: 20141104
  Receipt Date: 20160621
  Transmission Date: 20160815
  Serious: Yes (Hospitalization, Disabling, Other)
  Sender: FDA-Public Use
  Company Number: US-009507513-1411USA000507

PATIENT
  Sex: Female

DRUGS (1)
  1. FOSAMAX [Suspect]
     Active Substance: ALENDRONATE SODIUM
     Indication: OSTEOPOROSIS
     Dosage: 70 MG, QW
     Route: 048
     Dates: start: 2002, end: 2008

REACTIONS (7)
  - Femur fracture [Unknown]
  - Asthma [Unknown]
  - Blood pressure increased [Unknown]
  - Tooth loss [Unknown]
  - Intervertebral disc degeneration [Unknown]
  - Dental caries [Unknown]
  - Fall [Unknown]

NARRATIVE: CASE EVENT DATE: 2003
